FAERS Safety Report 10183460 (Version 1)
Quarter: 2014Q2

REPORT INFORMATION
  Report Type: Spontaneous
  Country: US (occurrence: US)
  Receive Date: 20140520
  Receipt Date: 20140520
  Transmission Date: 20141212
  Serious: No
  Sender: FDA-Public Use
  Company Number: US-VERTEX PHARMACEUTICALS INC-2014-002359

PATIENT
  Age: 62 Year
  Sex: Male
  Weight: 87 kg

DRUGS (4)
  1. INCIVEK [Suspect]
     Indication: HEPATITIS C
     Dosage: UNK
     Dates: start: 20140130, end: 20140424
  2. RIBAPAK [Suspect]
     Indication: HEPATITIS C
     Dosage: 800 MG AM, 400 MG PM
     Dates: start: 20140130, end: 201404
  3. RIBAPAK [Suspect]
     Dosage: 400 MG, BID
     Dates: start: 201404
  4. PEGASYS [Suspect]
     Indication: HEPATITIS C
     Dosage: 180 ?G, QW
     Route: 058
     Dates: start: 20140130

REACTIONS (3)
  - Depressed mood [Not Recovered/Not Resolved]
  - Rash [Not Recovered/Not Resolved]
  - Pruritus [Recovering/Resolving]
